FAERS Safety Report 20344953 (Version 2)
Quarter: 2022Q1

REPORT INFORMATION
  Report Type: Spontaneous
  Country: AU (occurrence: None)
  Receive Date: 20220118
  Receipt Date: 20220208
  Transmission Date: 20220424
  Serious: Yes (Other)
  Sender: FDA-Public Use
  Company Number: 2022A021643

PATIENT
  Sex: Female

DRUGS (3)
  1. FASLODEX [Suspect]
     Active Substance: FULVESTRANT
     Indication: Breast cancer metastatic
     Route: 030
     Dates: start: 202104
  2. ZOLADEX [Suspect]
     Active Substance: GOSERELIN ACETATE
     Indication: Breast cancer metastatic
     Route: 058
     Dates: start: 202008, end: 20201221
  3. NOLVADEX [Suspect]
     Active Substance: TAMOXIFEN CITRATE
     Indication: Breast cancer metastatic
     Route: 048
     Dates: start: 202012, end: 202104

REACTIONS (5)
  - Malignant neoplasm progression [Unknown]
  - Small intestinal obstruction [Unknown]
  - Neutropenia [Unknown]
  - Thrombocytopenia [Unknown]
  - Hepatic enzyme abnormal [Unknown]
